FAERS Safety Report 4565523-3 (Version None)
Quarter: 2005Q1

REPORT INFORMATION
  Report Type: 
  Country: None (occurrence: None)
  Receive Date: 20050131
  Receipt Date: 20050119
  Transmission Date: 20050727
  Serious: Yes (Other)
  Sender: FDA-Public Use
  Company Number: FR-GLAXOSMITHKLINE-B0365638A

PATIENT
  Sex: Male

DRUGS (1)
  1. ZEFFIX [Suspect]
     Indication: HEPATITIS B
     Route: 048
     Dates: start: 20041101

REACTIONS (1)
  - NEUTROPENIA [None]
